FAERS Safety Report 17597402 (Version 3)
Quarter: 2020Q2

REPORT INFORMATION
  Report Type: Report from Study
  Country: US (occurrence: US)
  Receive Date: 20200330
  Receipt Date: 20200528
  Transmission Date: 20200713
  Serious: No
  Sender: FDA-Public Use
  Company Number: US-009507513-2003USA010413

PATIENT
  Sex: Male

DRUGS (1)
  1. JANUMET XR [Suspect]
     Active Substance: METFORMIN HYDROCHLORIDE\SITAGLIPTIN PHOSPHATE
     Dosage: UNK
     Route: 048

REACTIONS (4)
  - Product dose omission [Unknown]
  - Blood glucose increased [Unknown]
  - Visual impairment [Unknown]
  - No adverse event [Unknown]

NARRATIVE: CASE EVENT DATE: 20200312
